FAERS Safety Report 6735398-2 (Version None)
Quarter: 2010Q2

REPORT INFORMATION
  Report Type: 
  Country: None (occurrence: None)
  Receive Date: 20100521
  Receipt Date: 20100508
  Transmission Date: 20101027
  Serious: Yes (Hospitalization)
  Sender: FDA-Public Use
  Company Number: PHHY2010AT30025

PATIENT
  Age: 45 Year
  Sex: Female
  Weight: 53 kg

DRUGS (14)
  1. TRILEPTAL [Suspect]
     Indication: CONVULSION
     Dosage: 600 MG, UNK
     Dates: start: 20100125, end: 20100131
  2. TRILEPTAL [Suspect]
     Dosage: 300 MG, UNK
     Dates: start: 20100201
  3. VOLTAREN [Suspect]
     Dosage: 100 MG, QD
     Dates: start: 20100128, end: 20100130
  4. VOLTAREN [Suspect]
     Dosage: 50 MG
     Dates: start: 20100131, end: 20100203
  5. LAMICTAL [Suspect]
     Dosage: 100 MG
     Dates: end: 20100128
  6. LAMICTAL [Suspect]
     Dosage: 125 MG
     Dates: start: 20100129, end: 20100204
  7. LAMICTAL [Suspect]
     Dosage: 150 MG
     Dates: start: 20100205, end: 20100211
  8. LAMICTAL [Suspect]
     Dosage: 200 MG
     Dates: start: 20100212
  9. NEXIUM [Suspect]
     Dosage: 20 MG
     Dates: start: 20100123, end: 20100203
  10. NEXIUM [Suspect]
     Dosage: 40 MG
     Dates: start: 20100205
  11. CREON [Concomitant]
     Dosage: 25000
  12. PANTOPRAZOLE [Concomitant]
     Dosage: 40 MG
     Dates: start: 20100206
  13. LORAZEPAM [Concomitant]
     Dosage: 1.5 MG
     Dates: start: 20100202
  14. LORAZEPAM [Concomitant]
     Dosage: 1 MG
     Dates: start: 20100203

REACTIONS (4)
  - APATHY [None]
  - C-REACTIVE PROTEIN INCREASED [None]
  - FATIGUE [None]
  - HYPONATRAEMIA [None]
